FAERS Safety Report 4974318-8 (Version None)
Quarter: 2006Q2

REPORT INFORMATION
  Report Type: 
  Country: None (occurrence: None)
  Receive Date: 20060417
  Receipt Date: 20050920
  Transmission Date: 20061013
  Serious: Yes (Death, Hospitalization)
  Sender: FDA-Public Use
  Company Number: US-MERCK-0509USA03167

PATIENT
  Age: 88 Year
  Sex: Female
  Weight: 53 kg

DRUGS (8)
  1. NORVASC [Concomitant]
     Route: 065
  2. LISINOPRIL [Concomitant]
     Route: 065
     Dates: start: 20021001, end: 20040115
  3. MIRALAX [Concomitant]
     Route: 065
  4. TYLENOL (CAPLET) [Concomitant]
     Route: 065
     Dates: start: 19940101, end: 20040101
  5. VIOXX [Suspect]
     Indication: BACK PAIN
     Route: 048
     Dates: start: 20031106, end: 20040115
  6. NEURONTIN [Concomitant]
     Route: 065
  7. ULTRACET [Concomitant]
     Indication: PAIN
     Route: 065
     Dates: start: 20031101, end: 20040112
  8. OXYCODONE [Concomitant]
     Route: 065

REACTIONS (15)
  - ABDOMINAL PAIN UPPER [None]
  - ACUTE MYOCARDIAL INFARCTION [None]
  - ANAEMIA [None]
  - BLOOD TRIGLYCERIDES INCREASED [None]
  - CARDIO-RESPIRATORY ARREST [None]
  - CONSTIPATION [None]
  - CORONARY ARTERY DISEASE [None]
  - DEPRESSION [None]
  - DIARRHOEA [None]
  - HYPERTENSION [None]
  - HYPOXIA [None]
  - PNEUMONIA [None]
  - RENAL FAILURE ACUTE [None]
  - SICK SINUS SYNDROME [None]
  - TRANSIENT ISCHAEMIC ATTACK [None]
